FAERS Safety Report 9535386 (Version 2)
Quarter: 2014Q2

REPORT INFORMATION
  Report Type: Report from Study
  Country: US (occurrence: US)
  Receive Date: 20130918
  Receipt Date: 20140430
  Transmission Date: 20141212
  Serious: Yes (Other)
  Sender: FDA-Public Use
  Company Number: US-US-EMD SERONO, INC.-7237177

PATIENT
  Age: 62 Year
  Sex: Female

DRUGS (1)
  1. REBIF [Suspect]
     Indication: MULTIPLE SCLEROSIS
     Route: 058
     Dates: start: 20030912

REACTIONS (9)
  - Uterine prolapse [Not Recovered/Not Resolved]
  - Convulsion [Unknown]
  - Fall [Unknown]
  - Foot fracture [Not Recovered/Not Resolved]
  - Joint swelling [Unknown]
  - Bone density decreased [Unknown]
  - Hypothyroidism [Unknown]
  - White blood cell count decreased [Unknown]
  - Injection site bruising [Unknown]
